FAERS Safety Report 17130342 (Version 4)
Quarter: 2024Q2

REPORT INFORMATION
  Report Type: Spontaneous
  Country: ES (occurrence: ES)
  Receive Date: 20191209
  Receipt Date: 20240424
  Transmission Date: 20240715
  Serious: Yes (Disabling)
  Sender: FDA-Public Use
  Company Number: ES-BAYER-2019-217798

PATIENT
  Age: 40 Year
  Sex: Male

DRUGS (1)
  1. MOXIFLOXACIN HYDROCHLORIDE [Suspect]
     Active Substance: MOXIFLOXACIN HYDROCHLORIDE\MOXIFLOXACIN HYDROCHLORIDE MONOHYDRATE
     Indication: Influenza
     Dosage: 400 MG, QD
     Dates: start: 2017

REACTIONS (4)
  - Depression [None]
  - Amnesia [None]
  - Disturbance in attention [None]
  - Suicide attempt [None]
